FAERS Safety Report 9175249 (Version 2)
Quarter: 2013Q1

REPORT INFORMATION
  Report Type: Spontaneous
  Country: US (occurrence: US)
  Receive Date: 20130320
  Receipt Date: 20130329
  Transmission Date: 20140127
  Serious: Yes (Hospitalization)
  Sender: FDA-Public Use
  Company Number: US-009507513-1303USA008036

PATIENT
  Age: 50 Year
  Sex: Female

DRUGS (9)
  1. VICTRELIS [Suspect]
     Indication: CHRONIC HEPATITIS C
     Dosage: 800 MG, TID
     Route: 048
     Dates: start: 20120323, end: 20130114
  2. PEGASYS [Suspect]
     Indication: CHRONIC HEPATITIS C
     Dosage: 180 MICROGRAM, QW
     Route: 065
     Dates: start: 20120323, end: 20130301
  3. RIBASPHERE [Suspect]
     Indication: CHRONIC HEPATITIS C
     Dosage: DIVIDED DOSES
     Route: 065
     Dates: start: 20121206, end: 20130301
  4. RIBASPHERE [Suspect]
     Dosage: 600 MG, UNK
     Route: 065
     Dates: start: 20120427
  5. RIBASPHERE [Suspect]
     Dosage: 1000 MG, UNK
  6. TELAPREVIR [Suspect]
     Indication: CHRONIC HEPATITIS
     Dosage: UNK UNK, TID
     Dates: start: 20120323, end: 20120617
  7. SYNTHROID [Concomitant]
  8. ASPIRIN [Concomitant]
     Dosage: 81 MG, QD
  9. AMBIEN [Concomitant]
     Route: 065

REACTIONS (13)
  - Oxygen saturation abnormal [Recovered/Resolved]
  - Pneumonia [Recovered/Resolved]
  - Asthenia [Recovered/Resolved]
  - Fatigue [Recovered/Resolved]
  - Nasopharyngitis [Recovered/Resolved]
  - Cough [Recovered/Resolved]
  - Dyspnoea [Recovered/Resolved]
  - Fatigue [Recovered/Resolved]
  - Dry skin [Recovered/Resolved]
  - Insomnia [Unknown]
  - Arthralgia [Unknown]
  - Nightmare [Unknown]
  - Hallucination [Unknown]
